FAERS Safety Report 4362909-7 (Version None)
Quarter: 2004Q2

REPORT INFORMATION
  Report Type: 
  Country: None (occurrence: None)
  Receive Date: 20040517
  Receipt Date: 20040401
  Transmission Date: 20050107
  Serious: No
  Sender: FDA-Public Use
  Company Number: S04-USA-01902-01

PATIENT
  Age: 80 Year
  Sex: Female

DRUGS (5)
  1. NAMENDA [Suspect]
     Indication: DEMENTIA ALZHEIMER'S TYPE
  2. AMIODARONE HCL [Concomitant]
  3. IMDUR [Concomitant]
  4. SEROQUEL [Concomitant]
  5. ATENOLOL [Concomitant]

REACTIONS (2)
  - DIZZINESS [None]
  - HYPOAESTHESIA [None]
